FAERS Safety Report 8238686-6 (Version None)
Quarter: 2012Q1

REPORT INFORMATION
  Report Type: 
  Country: None (occurrence: None)
  Receive Date: 20120327
  Receipt Date: 20120323
  Transmission Date: 20120608
  Serious: No
  Sender: FDA-Public Use
  Company Number: US-BAYER-2012-029577

PATIENT
  Age: 78 Year
  Sex: Female
  Weight: 49 kg

DRUGS (3)
  1. DIOVAN [Concomitant]
  2. ALEVE (CAPLET) [Suspect]
     Dosage: 1 UNIT USED ONLY ONE TIME
     Route: 048
     Dates: start: 20120320, end: 20120320
  3. ZOCOR [Concomitant]

REACTIONS (2)
  - VERTIGO [None]
  - NAUSEA [None]
